FAERS Safety Report 11635092 (Version 1)
Quarter: 2015Q4

REPORT INFORMATION
  Report Type: Spontaneous
  Country: US (occurrence: US)
  Receive Date: 20151015
  Receipt Date: 20151015
  Transmission Date: 20160304
  Serious: Yes (Other)
  Sender: FDA-Public Use
  Company Number: US-BRISTOL-MYERS SQUIBB COMPANY-BMS-2015-068439

PATIENT
  Sex: Female
  Weight: 91 kg

DRUGS (1)
  1. ELIQUIS [Suspect]
     Active Substance: APIXABAN
     Indication: THROMBOSIS
     Dosage: 5 MG, BID
     Route: 065

REACTIONS (6)
  - Pain in extremity [Unknown]
  - Palpitations [Unknown]
  - Internal haemorrhage [Unknown]
  - Sunburn [Not Recovered/Not Resolved]
  - Rash pruritic [Recovering/Resolving]
  - Somnolence [None]
